FAERS Safety Report 7400814-X (Version None)
Quarter: 2011Q2

REPORT INFORMATION
  Report Type: 
  Country: None (occurrence: None)
  Receive Date: 20110407
  Receipt Date: 20110324
  Transmission Date: 20111010
  Serious: Yes (Hospitalization, Other)
  Sender: FDA-Public Use
  Company Number: US-BAYER-200929755NA

PATIENT
  Sex: Female
  Weight: 113.38 kg

DRUGS (8)
  1. MOTRIN [Concomitant]
     Dosage: UNK
     Dates: start: 20051229, end: 20080401
  2. YASMIN [Suspect]
     Indication: CONTRACEPTION
     Dosage: UNK
  3. ADVIL LIQUI-GELS [Concomitant]
  4. PRILOSEC [Concomitant]
     Indication: DYSPEPSIA
  5. PROPRANOLOL [Concomitant]
  6. IBUPROFEN [Concomitant]
     Indication: INFLAMMATION
     Dosage: 600 MG, TID
     Route: 048
  7. UNCODEABLE ^UNCLASSIFIABLE^ [Concomitant]
     Indication: URINARY TRACT INFECTION
  8. VICODIN [Concomitant]

REACTIONS (4)
  - PHLEBITIS [None]
  - PAIN IN EXTREMITY [None]
  - OEDEMA PERIPHERAL [None]
  - DEEP VEIN THROMBOSIS [None]
